FAERS Safety Report 12633760 (Version 1)
Quarter: 2016Q3

REPORT INFORMATION
  Report Type: Spontaneous
  Country: US (occurrence: US)
  Receive Date: 20160808
  Receipt Date: 20160808
  Transmission Date: 20161109
  Serious: Yes (Other)
  Sender: FDA-Public Use
  Company Number: US-PFIZER INC-2016377486

PATIENT
  Age: 16 Year
  Sex: Male

DRUGS (1)
  1. GENOTROPIN [Suspect]
     Active Substance: SOMATROPIN
     Indication: GROWTH RETARDATION
     Dosage: 1.6 MG, DAILY
     Dates: start: 20100508, end: 201607

REACTIONS (2)
  - Scoliosis [Not Recovered/Not Resolved]
  - Condition aggravated [Not Recovered/Not Resolved]
